FAERS Safety Report 8391340-2 (Version None)
Quarter: 2012Q2

REPORT INFORMATION
  Report Type: 
  Country: None (occurrence: None)
  Receive Date: 20120529
  Receipt Date: 20120521
  Transmission Date: 20120825
  Serious: Yes (Other)
  Sender: FDA-Public Use
  Company Number: US-JNJFOC-20120519220

PATIENT
  Age: 64 Year
  Sex: Female
  Weight: 49.89 kg

DRUGS (4)
  1. CHANTIX [Suspect]
     Indication: SMOKING CESSATION THERAPY
     Route: 048
  2. CYMBALTA [Concomitant]
     Indication: DEPRESSION
     Route: 065
  3. UNKNOWN MEDICATION [Concomitant]
     Indication: ANXIETY
     Route: 065
  4. NICOTROL [Suspect]
     Indication: PRODUCT USED FOR UNKNOWN INDICATION
     Route: 065

REACTIONS (10)
  - HAND FRACTURE [None]
  - JOINT INJURY [None]
  - BIPOLAR DISORDER [None]
  - WRIST FRACTURE [None]
  - HERNIA [None]
  - NECK SURGERY [None]
  - FACIAL BONES FRACTURE [None]
  - NECK PAIN [None]
  - ARTHRITIS [None]
  - BACK PAIN [None]
